FAERS Safety Report 24280685 (Version 2)
Quarter: 2024Q3

REPORT INFORMATION
  Report Type: Report from Study
  Country: JP (occurrence: JP)
  Receive Date: 20240904
  Receipt Date: 20240930
  Transmission Date: 20241016
  Serious: No
  Sender: INSMED
  Company Number: JP-INSMED, INC.-2024-00790-JP

PATIENT
  Age: 67 Year
  Sex: Female

DRUGS (2)
  1. ARIKAYCE [Suspect]
     Active Substance: AMIKACIN
     Indication: Product used for unknown indication
     Dosage: UNK, UNK
     Route: 055
     Dates: start: 20240206, end: 20240218
  2. ARIKAYCE [Suspect]
     Active Substance: AMIKACIN
     Dosage: UNK UNK, QOD
     Route: 055
     Dates: start: 202403

REACTIONS (6)
  - Physical deconditioning [Unknown]
  - Adverse reaction [Unknown]
  - Aphonia [Unknown]
  - Dysphonia [Unknown]
  - Off label use [Unknown]
  - Device issue [Unknown]

NARRATIVE: CASE EVENT DATE: 20240101
